FAERS Safety Report 4780504-2 (Version None)
Quarter: 2005Q3

REPORT INFORMATION
  Report Type: 
  Country: None (occurrence: None)
  Receive Date: 20050926
  Receipt Date: 20050914
  Transmission Date: 20060218
  Serious: Yes (Death)
  Sender: FDA-Public Use
  Company Number: 2005127563

PATIENT
  Age: 47 Year
  Sex: 0

DRUGS (3)
  1. SERTRALINE HCL [Suspect]
     Indication: ILL-DEFINED DISORDER
  2. ETHYLENE GLYCOL (ETHYLENE GLYCOL) [Suspect]
     Indication: ILL-DEFINED DISORDER
  3. BORIC ACID (BORIC ACID) [Suspect]
     Indication: ILL-DEFINED DISORDER

REACTIONS (3)
  - COMPLETED SUICIDE [None]
  - INTENTIONAL MISUSE [None]
  - OVERDOSE [None]
